FAERS Safety Report 8075907-7 (Version None)
Quarter: 2012Q1

REPORT INFORMATION
  Report Type: 
  Country: None (occurrence: None)
  Receive Date: 20120127
  Receipt Date: 20120119
  Transmission Date: 20120608
  Serious: Yes (Hospitalization)
  Sender: FDA-Public Use
  Company Number: US-BAYER-2011-037958

PATIENT
  Age: 15 Year
  Sex: Female
  Weight: 78.005 kg

DRUGS (1)
  1. YASMIN [Suspect]
     Indication: CONTRACEPTION
     Dosage: UNK
     Dates: start: 20070621, end: 20070813

REACTIONS (10)
  - INJURY [None]
  - EMOTIONAL DISTRESS [None]
  - COUGH [None]
  - DYSPNOEA [None]
  - PULMONARY EMBOLISM [None]
  - PAIN [None]
  - CHEST PAIN [None]
  - ANXIETY [None]
  - RESPIRATORY ARREST [None]
  - BACK PAIN [None]
